FAERS Safety Report 9543069 (Version 1)
Quarter: 2013Q2

REPORT INFORMATION
  Report Type: Spontaneous
  Country: US (occurrence: None)
  Receive Date: 20130524
  Receipt Date: 20130524
  Transmission Date: 20140414
  Serious: No
  Sender: FDA-Public Use
  Company Number: PHEH2013US001064

PATIENT
  Age: 42 Year
  Sex: Female

DRUGS (1)
  1. GILENYA [Suspect]
     Indication: MULTIPLE SCLEROSIS
     Route: 048
     Dates: start: 20110405

REACTIONS (10)
  - Inflammation [None]
  - Nasopharyngitis [None]
  - Multiple sclerosis relapse [None]
  - Maternal exposure during pregnancy [None]
  - Normal newborn [None]
  - Exposure during breast feeding [None]
  - Pain [None]
  - Visual acuity reduced [None]
  - Dysuria [None]
  - Balance disorder [None]
